FAERS Safety Report 11399237 (Version 1)
Quarter: 2015Q3

REPORT INFORMATION
  Report Type: Spontaneous
  Country: ES (occurrence: ES)
  Receive Date: 20150820
  Receipt Date: 20150820
  Transmission Date: 20151125
  Serious: Yes (Other)
  Sender: FDA-Public Use
  Company Number: ES-ACTAVIS-2015-17629

PATIENT
  Age: 48 Year
  Sex: Female
  Weight: 58 kg

DRUGS (7)
  1. ETORICOXIB [Suspect]
     Active Substance: ETORICOXIB
     Indication: PRODUCT USED FOR UNKNOWN INDICATION
     Dosage: 90 MG, TOTAL
     Route: 065
  2. FLUTICASONE PROPIONATE W/SALMETEROL [Concomitant]
     Active Substance: FLUTICASONE PROPIONATE\SALMETEROL XINAFOATE
     Indication: ASTHMA
     Dosage: 50/250 MCG TWICE A DAY
     Route: 065
  3. IBUPROFEN (UNKNOWN) [Suspect]
     Active Substance: IBUPROFEN
     Indication: PRODUCT USED FOR UNKNOWN INDICATION
     Dosage: 600 MG, UNKNOWN
     Route: 048
  4. PARACETAMOL  (UNKNOWN) [Suspect]
     Active Substance: ACETAMINOPHEN
     Indication: PRODUCT USED FOR UNKNOWN INDICATION
     Dosage: 1 G, UNKNOWN
     Route: 065
  5. ACETYLSALICYLIC ACID [Suspect]
     Active Substance: ASPIRIN
     Indication: PRODUCT USED FOR UNKNOWN INDICATION
     Dosage: 500 MG, UNKNOWN
     Route: 048
  6. ACETYLSALICYLIC ACID [Suspect]
     Active Substance: ASPIRIN
     Dosage: 50 MG, SINGLE
     Route: 048
  7. ACETYLSALICYLIC ACID [Suspect]
     Active Substance: ASPIRIN
     Dosage: 25 MG, SINGLE
     Route: 048

REACTIONS (3)
  - Angioedema [Recovered/Resolved]
  - Aspirin-exacerbated respiratory disease [Recovered/Resolved]
  - Urticaria [Recovered/Resolved]
